FAERS Safety Report 6490046-4 (Version None)
Quarter: 2009Q4

REPORT INFORMATION
  Report Type: 
  Country: None (occurrence: None)
  Receive Date: 20091211
  Receipt Date: 20091130
  Transmission Date: 20100525
  Serious: Yes (Death, Other)
  Sender: FDA-Public Use
  Company Number: CA-ROCHE-671801

PATIENT
  Age: 62 Year
  Sex: Female

DRUGS (3)
  1. RIBAVIRIN [Suspect]
     Indication: HEPATITIS C
     Route: 065
  2. INTERFERON ALFA [Suspect]
     Indication: HEPATITIS C
     Route: 065
  3. TAMOXIFEN CITRATE [Suspect]
     Indication: SCLEROSING ENCAPSULATING PERITONITIS
     Route: 065

REACTIONS (6)
  - CHOLANGITIS [None]
  - DEATH [None]
  - HAEMOLYTIC ANAEMIA [None]
  - SCLEROSING ENCAPSULATING PERITONITIS [None]
  - SMALL INTESTINAL OBSTRUCTION [None]
  - STAPHYLOCOCCAL INFECTION [None]
